FAERS Safety Report 7311473-9 (Version None)
Quarter: 2011Q1

REPORT INFORMATION
  Report Type: 
  Country: None (occurrence: None)
  Receive Date: 20110224
  Receipt Date: 20110209
  Transmission Date: 20110831
  Serious: Yes (Hospitalization)
  Sender: FDA-Public Use
  Company Number: US-EISAI INC-E7272-00087-CLI-US

PATIENT
  Sex: Female
  Weight: 62 kg

DRUGS (1)
  1. ONTAK [Suspect]
     Indication: ANGIOIMMUNOBLASTIC T-CELL LYMPHOMA
     Route: 041
     Dates: start: 20110201, end: 20110205

REACTIONS (1)
  - FEBRILE NEUTROPENIA [None]
